FAERS Safety Report 6294571-0 (Version None)
Quarter: 2009Q3

REPORT INFORMATION
  Report Type: 
  Country: None (occurrence: None)
  Receive Date: 20090803
  Receipt Date: 20090730
  Transmission Date: 20100115
  Serious: Yes (Hospitalization, Other)
  Sender: FDA-Public Use
  Company Number: US-ASTRAZENECA-2007UW14135

PATIENT
  Age: 13456 Day
  Sex: Male
  Weight: 99.8 kg

DRUGS (20)
  1. SEROQUEL [Suspect]
     Indication: INSOMNIA
     Route: 048
     Dates: start: 20030101, end: 20060501
  2. SEROQUEL [Suspect]
     Indication: ANXIETY
     Route: 048
     Dates: start: 20030101, end: 20060501
  3. SEROQUEL [Suspect]
     Dosage: 300MG TO 1200MG
     Route: 048
     Dates: start: 20021105, end: 20060501
  4. SEROQUEL [Suspect]
     Dosage: 300MG TO 1200MG
     Route: 048
     Dates: start: 20021105, end: 20060501
  5. COLCHICINE [Concomitant]
  6. TRILEPTAL [Concomitant]
  7. CLONAZEPAM [Concomitant]
  8. ALLOPURINOL [Concomitant]
  9. INDOMETHACIN [Concomitant]
  10. HUMULINE R [Concomitant]
  11. AMBIEN [Concomitant]
  12. ACETAMINOPHEN AND HYDROCODONE BITARTRATE [Concomitant]
  13. ALPRAZOLAM [Concomitant]
  14. LANTUS [Concomitant]
  15. ZOLOFT [Concomitant]
  16. TOPAMAX [Concomitant]
  17. ZYPREXA [Concomitant]
     Dates: start: 20040101
  18. LEXAPRO [Concomitant]
  19. XANAX [Concomitant]
  20. CELEXA [Concomitant]

REACTIONS (9)
  - AGORAPHOBIA [None]
  - BLOOD CHOLESTEROL INCREASED [None]
  - HALLUCINATION, AUDITORY [None]
  - HIP ARTHROPLASTY [None]
  - PANIC ATTACK [None]
  - POST-TRAUMATIC STRESS DISORDER [None]
  - SLEEP DISORDER [None]
  - SUICIDAL IDEATION [None]
  - TYPE 1 DIABETES MELLITUS [None]
